FAERS Safety Report 4843511-7 (Version None)
Quarter: 2005Q4

REPORT INFORMATION
  Report Type: 
  Country: None (occurrence: None)
  Receive Date: 20051202
  Receipt Date: 20030411
  Transmission Date: 20060501
  Serious: Yes (Hospitalization, Other)
  Sender: FDA-Public Use
  Company Number: PHBS2003CH03939

PATIENT
  Age: 42 Year
  Sex: Male

DRUGS (6)
  1. GLEEVEC [Suspect]
     Indication: CHRONIC MYELOID LEUKAEMIA
     Dosage: 400-800 MG/D
     Route: 048
     Dates: start: 20011126, end: 20030328
  2. VORICONAZOLE [Suspect]
     Indication: ASPERGILLOSIS
     Dosage: 600 MG/D
     Dates: start: 20030127
  3. PRIMPERAN INJ [Concomitant]
     Indication: NAUSEA
     Dosage: 30 MG/D
  4. CODEINE [Concomitant]
     Indication: COUGH
     Dosage: 40 MG/D
  5. DAFALGAN [Concomitant]
     Indication: PAIN
     Dosage: 2 G/D
  6. OMEPRAZOLE [Concomitant]
     Dosage: 40 MG/D

REACTIONS (11)
  - ASPERGILLOSIS [None]
  - ASTHENIA [None]
  - COUGH [None]
  - DRUG INTERACTION [None]
  - DRUG LEVEL INCREASED [None]
  - MALIGNANT NEOPLASM PROGRESSION [None]
  - MUCOCUTANEOUS CANDIDIASIS [None]
  - PYREXIA [None]
  - RASH ERYTHEMATOUS [None]
  - RASH MACULO-PAPULAR [None]
  - TOXIC SKIN ERUPTION [None]
